FAERS Safety Report 7859720-9 (Version None)
Quarter: 2011Q4

REPORT INFORMATION
  Report Type: 
  Country: None (occurrence: None)
  Receive Date: 20111027
  Receipt Date: 20111026
  Transmission Date: 20120403
  Serious: Yes (Other)
  Sender: FDA-Public Use
  Company Number: US-SANOFI-AVENTIS-2010SA078355

PATIENT
  Age: 65 Year
  Sex: Female

DRUGS (12)
  1. ASPIRIN [Concomitant]
     Route: 048
  2. MULTAQ [Suspect]
     Route: 048
     Dates: start: 20101222
  3. ACTONEL [Concomitant]
     Dosage: TOOK FOR 2 TO 3 YRS
     Route: 065
     Dates: end: 20110101
  4. ROSUVASTATIN CALCIUM [Concomitant]
     Dates: start: 20110101
  5. MULTAQ [Suspect]
     Route: 048
     Dates: start: 20101222
  6. ALPRAZOLAM [Concomitant]
     Indication: ANXIETY
  7. ALPRAZOLAM [Concomitant]
  8. MULTAQ [Suspect]
     Indication: ATRIAL FIBRILLATION
     Route: 048
     Dates: start: 20101222
  9. MULTAQ [Suspect]
     Route: 048
     Dates: start: 20101222
  10. ASPIRIN [Concomitant]
     Dosage: 1/2 A TABLET OF 325 MG
     Route: 048
     Dates: start: 20110101
  11. ALPRAZOLAM [Concomitant]
  12. ATORVASTATIN [Concomitant]

REACTIONS (13)
  - CIRCADIAN RHYTHM SLEEP DISORDER [None]
  - WHEEZING [None]
  - DEPRESSION [None]
  - NERVOUSNESS [None]
  - HEART RATE INCREASED [None]
  - RASH ERYTHEMATOUS [None]
  - PULMONARY FUNCTION TEST ABNORMAL [None]
  - ATRIAL FIBRILLATION [None]
  - BLOOD GLUCOSE INCREASED [None]
  - PRODUCT QUALITY ISSUE [None]
  - TENSION HEADACHE [None]
  - NIGHTMARE [None]
  - SKIN EXFOLIATION [None]
